FAERS Safety Report 7093424-8 (Version None)
Quarter: 2010Q4

REPORT INFORMATION
  Report Type: 
  Country: None (occurrence: None)
  Receive Date: 20101110
  Receipt Date: 20101028
  Transmission Date: 20110411
  Serious: Yes (Hospitalization, Other)
  Sender: FDA-Public Use
  Company Number: PHFR2010IE01036

PATIENT
  Sex: Female

DRUGS (6)
  1. CLOZARIL [Suspect]
     Indication: SCHIZOPHRENIA
     Dosage: 300 MG/DAY
     Route: 048
     Dates: start: 20050505
  2. CLOZARIL [Suspect]
     Dosage: 225 MG
     Route: 048
     Dates: start: 20090819
  3. CITALOPRAM HYDROBROMIDE [Concomitant]
     Dosage: 40MG/DAY
     Route: 048
     Dates: start: 20090303
  4. DONEPEZIL HCL [Concomitant]
     Indication: DEMENTIA
     Dosage: 10MG/DAY
     Route: 048
     Dates: start: 20090303
  5. VALPROATE SODIUM [Concomitant]
     Indication: SCHIZOPHRENIA
     Dosage: 400MG/DAY
     Route: 048
     Dates: start: 20090303
  6. ATORVASTATIN [Concomitant]
     Indication: BLOOD CHOLESTEROL INCREASED
     Dosage: 20MG/DAY
     Route: 048
     Dates: start: 20090303

REACTIONS (10)
  - ANTIPSYCHOTIC DRUG LEVEL INCREASED [None]
  - BLOOD CREATININE INCREASED [None]
  - BLOOD PRESSURE DECREASED [None]
  - BLOOD SODIUM DECREASED [None]
  - BLOOD UREA INCREASED [None]
  - HYPERHIDROSIS [None]
  - LOWER RESPIRATORY TRACT INFECTION [None]
  - MENTAL IMPAIRMENT [None]
  - SOMNOLENCE [None]
  - UNRESPONSIVE TO STIMULI [None]
